FAERS Safety Report 18585494 (Version 6)
Quarter: 2022Q2

REPORT INFORMATION
  Report Type: Report from Study
  Country: US (occurrence: US)
  Receive Date: 20201207
  Receipt Date: 20220610
  Transmission Date: 20220721
  Serious: No
  Sender: FDA-Public Use
  Company Number: NVSC2020US323601

PATIENT
  Age: 9 Year
  Sex: Male

DRUGS (2)
  1. OMNITROPE [Suspect]
     Active Substance: SOMATROPIN
     Indication: Hypopituitarism
     Dosage: 2.6 MG, QD
     Route: 058
     Dates: start: 20200129
  2. OMNITROPE [Suspect]
     Active Substance: SOMATROPIN
     Dosage: 10 UNK
     Route: 058

REACTIONS (4)
  - Product supply issue [Unknown]
  - Product storage error [Unknown]
  - Product use issue [Unknown]
  - Incorrect dose administered [Unknown]

NARRATIVE: CASE EVENT DATE: 20220326
